FAERS Safety Report 9779121 (Version 1)
Quarter: 2013Q4

REPORT INFORMATION
  Report Type: Spontaneous
  Country: US (occurrence: US)
  Receive Date: 20131223
  Receipt Date: 20131223
  Transmission Date: 20140711
  Serious: No
  Sender: FDA-Public Use
  Company Number: US-ENDO PHARMACEUTICALS INC.-OPCR20130373

PATIENT
  Sex: Male

DRUGS (4)
  1. OPANA ER 15 MG [Suspect]
     Indication: BACK PAIN
     Route: 048
     Dates: start: 201309
  2. OPANA ER 15 MG [Suspect]
     Indication: RADICULOPATHY
  3. OXYCODONE [Suspect]
     Indication: PAIN
     Route: 048
     Dates: end: 201309
  4. ROXICODONE [Concomitant]
     Indication: BREAKTHROUGH PAIN
     Route: 048

REACTIONS (3)
  - Withdrawal syndrome [Not Recovered/Not Resolved]
  - Insomnia [Not Recovered/Not Resolved]
  - Drug ineffective [Not Recovered/Not Resolved]
